FAERS Safety Report 5579134-4 (Version None)
Quarter: 2008Q1

REPORT INFORMATION
  Report Type: 
  Country: None (occurrence: None)
  Receive Date: 20080102
  Receipt Date: 20071227
  Transmission Date: 20080703
  Serious: Yes (Hospitalization)
  Sender: FDA-Public Use
  Company Number: PHBS2007JP21589

PATIENT
  Age: 64 Year
  Sex: Male

DRUGS (6)
  1. NORVASC [Concomitant]
     Dosage: 5 MG, UNK
     Route: 048
     Dates: start: 20070101
  2. TRICHLORMETHIAZIDE [Concomitant]
     Dosage: 4 MG/DAY
     Route: 048
     Dates: start: 20070101
  3. TRICHLORMETHIAZIDE [Concomitant]
     Dosage: 2 MG/DAY
     Route: 048
  4. BLOPRESS [Concomitant]
     Dosage: 8 MG, UNK
     Route: 048
     Dates: start: 20070301, end: 20071130
  5. DETRUSITOL [Concomitant]
     Dates: start: 20071130
  6. DIOVAN [Suspect]
     Indication: HYPERTENSION
     Dosage: 80 MG/DAY
     Route: 048
     Dates: start: 20071130, end: 20071217

REACTIONS (5)
  - ERYTHEMA [None]
  - HYPOTENSION [None]
  - OEDEMA [None]
  - PRURITUS GENERALISED [None]
  - SHOCK [None]
